FAERS Safety Report 9674464 (Version 1)
Quarter: 2013Q4

REPORT INFORMATION
  Report Type: Spontaneous
  Country: US (occurrence: US)
  Receive Date: 20131107
  Receipt Date: 20131107
  Transmission Date: 20140711
  Serious: Yes (Other)
  Sender: FDA-Public Use
  Company Number: US-AMGEN-USASP2013077390

PATIENT
  Age: 59 Year
  Sex: Female

DRUGS (2)
  1. PROLIA [Suspect]
     Indication: PROPHYLAXIS
     Dosage: UNK
     Route: 065
     Dates: start: 201303
  2. CALCIUM [Concomitant]

REACTIONS (6)
  - Pain in extremity [Unknown]
  - Arthralgia [Unknown]
  - Groin pain [Unknown]
  - Muscle spasms [Unknown]
  - Blood cholesterol increased [Unknown]
  - Rash [Unknown]
